FAERS Safety Report 6936341-3 (Version None)
Quarter: 2010Q3

REPORT INFORMATION
  Report Type: 
  Country: None (occurrence: None)
  Receive Date: 20100823
  Receipt Date: 20100716
  Transmission Date: 20110219
  Serious: No
  Sender: FDA-Public Use
  Company Number: US-MYLANLABS-2010S1012844

PATIENT
  Age: 71 Year
  Sex: Female
  Weight: 97.52 kg

DRUGS (8)
  1. ROPINIROLE HYDROCHLORIDE [Suspect]
     Indication: RESTLESS LEGS SYNDROME
     Route: 048
     Dates: start: 20100712
  2. DIOVAN [Concomitant]
     Indication: HYPERTENSION
     Dates: start: 20090101
  3. METOPROLOL TARTRATE [Concomitant]
     Indication: HYPERTENSION
     Dates: start: 20070101
  4. ISORBIDE [Concomitant]
     Indication: ANGINA PECTORIS
     Dates: start: 20070101
  5. SIMVASTATIN [Concomitant]
     Indication: BLOOD CHOLESTEROL INCREASED
     Dates: start: 20070101
  6. LEVOTHYROXINE SODIUM [Concomitant]
     Indication: HYPOTHYROIDISM
  7. ELMIRON [Concomitant]
     Indication: CYSTITIS INTERSTITIAL
     Dates: start: 20060101
  8. RANITIDINE [Concomitant]
     Indication: GASTROOESOPHAGEAL REFLUX DISEASE
     Dates: start: 20090101

REACTIONS (2)
  - PRURITUS [None]
  - URTICARIA [None]
